FAERS Safety Report 5649540-8 (Version None)
Quarter: 2008Q1

REPORT INFORMATION
  Report Type: 
  Country: None (occurrence: None)
  Receive Date: 20080304
  Receipt Date: 20080221
  Transmission Date: 20080703
  Serious: Yes (Other)
  Sender: FDA-Public Use
  Company Number: ES-PFIZER INC-2008015596

PATIENT
  Age: 19 Year
  Sex: Female

DRUGS (2)
  1. ZELDOX (CAPSULES) [Suspect]
     Indication: DEPRESSION
     Dates: start: 20070418, end: 20070427
  2. ZELDOX (CAPSULES) [Suspect]
     Indication: DELIRIUM

REACTIONS (4)
  - DIZZINESS [None]
  - DYSTONIA [None]
  - EXTRAPYRAMIDAL DISORDER [None]
  - NERVOUSNESS [None]
